FAERS Safety Report 23232301 (Version 1)
Quarter: 2023Q4

REPORT INFORMATION
  Report Type: Spontaneous
  Country: US (occurrence: US)
  Receive Date: 20231127
  Receipt Date: 20231127
  Transmission Date: 20240110
  Serious: No
  Sender: FDA-Public Use
  Company Number: US-SANOFI-01853617

PATIENT
  Age: 70 Year
  Sex: Female

DRUGS (1)
  1. LANTUS SOLOSTAR [Suspect]
     Active Substance: INSULIN GLARGINE
     Indication: Type 2 diabetes mellitus
     Dosage: 22 TO 23 UNITS OF LANTUS SOLOSTAR IN THE MORNING AND 23 TO 24 UNITS AT NIGHT
     Dates: start: 2022

REACTIONS (3)
  - Inappropriate schedule of product administration [Unknown]
  - Intentional product misuse [Unknown]
  - Product storage error [Unknown]

NARRATIVE: CASE EVENT DATE: 20220101
